FAERS Safety Report 24883763 (Version 4)
Quarter: 2025Q3

REPORT INFORMATION
  Report Type: Report from Study
  Country: JP (occurrence: JP)
  Receive Date: 20250124
  Receipt Date: 20250717
  Transmission Date: 20251021
  Serious: Yes (Death)
  Sender: SHIONOGI
  Company Number: JP-shionogi-202500000823

PATIENT
  Age: 46 Year
  Sex: Male
  Weight: 99.3 kg

DRUGS (28)
  1. CEFIDEROCOL [Suspect]
     Active Substance: CEFIDEROCOL
     Indication: Lung abscess
     Route: 041
     Dates: start: 20240528, end: 20240614
  2. CEFIDEROCOL [Suspect]
     Active Substance: CEFIDEROCOL
     Indication: Pneumonia
  3. CEFIDEROCOL [Suspect]
     Active Substance: CEFIDEROCOL
     Indication: Mediastinitis
  4. ZOSYN [Concomitant]
     Active Substance: PIPERACILLIN SODIUM\TAZOBACTAM SODIUM
     Indication: Lung abscess
     Dosage: SINCE MORE THAN 2 WEEKS BEFORE THE START OF FETROJA
     Route: 065
     Dates: end: 20240528
  5. ZOSYN [Concomitant]
     Active Substance: PIPERACILLIN SODIUM\TAZOBACTAM SODIUM
     Indication: Pneumonia
  6. ZOSYN [Concomitant]
     Active Substance: PIPERACILLIN SODIUM\TAZOBACTAM SODIUM
     Indication: Mediastinitis
  7. CIPROFLOXACIN [Concomitant]
     Active Substance: CIPROFLOXACIN
     Indication: Lung abscess
     Route: 065
     Dates: start: 20240517, end: 20240528
  8. CIPROFLOXACIN [Concomitant]
     Active Substance: CIPROFLOXACIN
     Indication: Pneumonia
  9. CIPROFLOXACIN [Concomitant]
     Active Substance: CIPROFLOXACIN
     Indication: Mediastinitis
  10. DAPTOMYCIN [Concomitant]
     Active Substance: DAPTOMYCIN
     Indication: Lung abscess
     Route: 065
     Dates: start: 20240521, end: 20240611
  11. DAPTOMYCIN [Concomitant]
     Active Substance: DAPTOMYCIN
     Indication: Pneumonia
  12. DAPTOMYCIN [Concomitant]
     Active Substance: DAPTOMYCIN
     Indication: Mediastinitis
  13. PROPOFOL [Concomitant]
     Active Substance: PROPOFOL
     Indication: Product used for unknown indication
     Route: 065
     Dates: end: 20240614
  14. DEXMEDETOMIDINE [Concomitant]
     Active Substance: DEXMEDETOMIDINE
     Indication: Product used for unknown indication
     Route: 065
     Dates: end: 20240614
  15. MIDAZOLAM [Concomitant]
     Active Substance: MIDAZOLAM
     Indication: Product used for unknown indication
     Route: 065
     Dates: end: 20240614
  16. MORPHINE HYDROCHLORIDE [Concomitant]
     Active Substance: MORPHINE HYDROCHLORIDE
     Indication: Product used for unknown indication
     Route: 065
     Dates: end: 20240614
  17. NOREPINEPHRINE BITARTRATE [Concomitant]
     Active Substance: NOREPINEPHRINE BITARTRATE
     Indication: Lung abscess
     Route: 065
     Dates: end: 20240614
  18. NOREPINEPHRINE BITARTRATE [Concomitant]
     Active Substance: NOREPINEPHRINE BITARTRATE
     Indication: Pneumonia
  19. NOREPINEPHRINE BITARTRATE [Concomitant]
     Active Substance: NOREPINEPHRINE BITARTRATE
     Indication: Mediastinitis
  20. PITRESSIN [Concomitant]
     Active Substance: VASOPRESSIN
     Indication: Lung abscess
     Route: 065
     Dates: end: 20240614
  21. PITRESSIN [Concomitant]
     Active Substance: VASOPRESSIN
     Indication: Pneumonia
  22. PITRESSIN [Concomitant]
     Active Substance: VASOPRESSIN
     Indication: Mediastinitis
  23. DOBUTAMINE [Concomitant]
     Active Substance: DOBUTAMINE HYDROCHLORIDE
     Indication: Lung abscess
     Route: 065
     Dates: end: 20240614
  24. DOBUTAMINE [Concomitant]
     Active Substance: DOBUTAMINE HYDROCHLORIDE
     Indication: Pneumonia
  25. DOBUTAMINE [Concomitant]
     Active Substance: DOBUTAMINE HYDROCHLORIDE
     Indication: Mediastinitis
  26. LANSOPRAZOLE [Concomitant]
     Active Substance: LANSOPRAZOLE
     Indication: Prophylaxis
     Route: 065
     Dates: end: 20240614
  27. FILGRASTIM [Concomitant]
     Active Substance: FILGRASTIM
     Indication: Product used for unknown indication
     Route: 065
     Dates: end: 20240614
  28. NAFAMOSTAT [Concomitant]
     Active Substance: NAFAMOSTAT
     Indication: Product used for unknown indication
     Route: 065
     Dates: end: 20240614

REACTIONS (1)
  - Lung abscess [Fatal]

NARRATIVE: CASE EVENT DATE: 20240529
